FAERS Safety Report 17682942 (Version 1)
Quarter: 2020Q2

REPORT INFORMATION
  Report Type: Other
  Country: US (occurrence: US)
  Receive Date: 20200420
  Receipt Date: 20200420
  Transmission Date: 20200714
  Serious: Yes (Hospitalization, Other)
  Sender: FDA-Public Use
  Company Number: US-UMEDICA-000010

PATIENT
  Age: 54 Year
  Sex: Male

DRUGS (1)
  1. ROSUVASTATIN. [Suspect]
     Active Substance: ROSUVASTATIN
     Indication: PRODUCT USED FOR UNKNOWN INDICATION

REACTIONS (6)
  - Drug reaction with eosinophilia and systemic symptoms [Unknown]
  - Acute kidney injury [Unknown]
  - Lymphadenopathy [Unknown]
  - Disseminated intravascular coagulation [Unknown]
  - Hypertransaminasaemia [Recovered/Resolved]
  - Hyperbilirubinaemia [Unknown]
